FAERS Safety Report 24024894 (Version 6)
Quarter: 2024Q3

REPORT INFORMATION
  Report Type: Report from Study
  Country: CN (occurrence: CN)
  Receive Date: 20240628
  Receipt Date: 20240710
  Transmission Date: 20241016
  Serious: No
  Sender: ROCHE
  Company Number: CN-ROCHE-3274575

PATIENT
  Age: 59 Year
  Sex: Female
  Weight: 75.0 kg

DRUGS (13)
  1. ALECTINIB [Suspect]
     Active Substance: ALECTINIB
     Indication: Lung cancer metastatic
     Route: 048
     Dates: start: 20210715
  2. URSODIOL [Concomitant]
     Active Substance: URSODIOL
     Indication: Blood bilirubin increased
     Route: 048
     Dates: start: 20210714
  3. HERBALS\DIAMMONIUM GLYCYRRHIZINATE [Concomitant]
     Active Substance: HERBALS\DIAMMONIUM GLYCYRRHIZINATE
     Indication: Prophylaxis
     Route: 048
     Dates: start: 20210713
  4. COMPOUND SOPHORA FLAVESCENS [Concomitant]
     Route: 050
     Dates: start: 20220815, end: 20220819
  5. COMPOUND SOPHORA FLAVESCENS [Concomitant]
     Route: 050
     Dates: start: 20220919, end: 20220922
  6. COMPOUND KUSHEN INJECTION [Concomitant]
     Route: 050
     Dates: start: 20220815, end: 20220819
  7. COMPOUND KUSHEN INJECTION [Concomitant]
     Route: 050
     Dates: start: 20220819, end: 20220922
  8. CLARITHROMYCIN [Concomitant]
     Active Substance: CLARITHROMYCIN
     Dosage: FREQUENCY TEXT:PRN
     Route: 048
     Dates: start: 20230107, end: 20230111
  9. AMBROXOL HYDROCHLORIDE [Concomitant]
     Active Substance: AMBROXOL HYDROCHLORIDE
     Indication: Cough
     Route: 042
     Dates: start: 20230107, end: 20230110
  10. ACETYLCYSTEINE [Concomitant]
     Active Substance: ACETYLCYSTEINE
     Indication: Productive cough
     Route: 048
     Dates: start: 20230110, end: 20230111
  11. ESTAZOLAM [Concomitant]
     Active Substance: ESTAZOLAM
     Indication: Sedation
     Route: 048
     Dates: start: 20230111, end: 20230111
  12. ESTAZOLAM [Concomitant]
     Active Substance: ESTAZOLAM
     Dates: start: 20230602
  13. DIETARY SUPPLEMENT\OPHIOCORDYCEPS SINENSIS [Concomitant]
     Active Substance: DIETARY SUPPLEMENT\OPHIOCORDYCEPS SINENSIS
     Route: 048
     Dates: start: 20221027, end: 20221029

REACTIONS (1)
  - Anaemia [Recovered/Resolved]

NARRATIVE: CASE EVENT DATE: 20220816
